FAERS Safety Report 7531893-7 (Version None)
Quarter: 2011Q2

REPORT INFORMATION
  Report Type: 
  Country: None (occurrence: None)
  Receive Date: 20110608
  Receipt Date: 20110526
  Transmission Date: 20111010
  Serious: Yes (Hospitalization)
  Sender: FDA-Public Use
  Company Number: US-BAYER-2011-041922

PATIENT
  Age: 55 Year
  Sex: Male

DRUGS (2)
  1. INTERFERON BETA-1B [Suspect]
     Indication: MULTIPLE SCLEROSIS
     Dosage: 8 MIU, QOD
     Route: 058
     Dates: start: 20110415, end: 20110511
  2. INTERFERON BETA-1B [Suspect]
     Dosage: 4 MIU, QOD
     Route: 058
     Dates: start: 20110516, end: 20110521

REACTIONS (3)
  - ABDOMINAL PAIN [None]
  - APPENDICITIS PERFORATED [None]
  - CHEST DISCOMFORT [None]
